FAERS Safety Report 25335001 (Version 1)
Quarter: 2025Q2

REPORT INFORMATION
  Report Type: Spontaneous
  Country: DE (occurrence: DE)
  Receive Date: 20250520
  Receipt Date: 20250520
  Transmission Date: 20250717
  Serious: Yes (Other)
  Sender: UCB
  Company Number: DE-UCBSA-2025028986

PATIENT
  Age: 35 Year
  Sex: Male

DRUGS (2)
  1. BIMZELX [Suspect]
     Active Substance: BIMEKIZUMAB-BKZX
     Indication: Psoriasis
     Dosage: 320 MILLIGRAM, EV 4 WEEKS
     Route: 058
     Dates: start: 202410, end: 202411
  2. ENTECAVIR [Concomitant]
     Active Substance: ENTECAVIR
     Indication: Hepatitis B DNA decreased
     Dosage: 0.5 MILLIGRAM, ONCE DAILY (QD)
     Dates: start: 2014

REACTIONS (1)
  - Hepatocellular carcinoma [Unknown]
